FAERS Safety Report 9834948 (Version 1)
Quarter: 2014Q1

REPORT INFORMATION
  Report Type: Spontaneous
  Country: US (occurrence: US)
  Receive Date: 20140122
  Receipt Date: 20140122
  Transmission Date: 20141002
  Serious: No
  Sender: FDA-Public Use
  Company Number: US-BAUSCH-BL-2013-004044

PATIENT
  Sex: Female

DRUGS (1)
  1. ALAWAY (KETOTIFEN FUMARATE OPHTHALMIC SOLUTION) [Suspect]
     Indication: PRODUCT USED FOR UNKNOWN INDICATION
     Dosage: DROP; OPHTHALMIC
     Route: 047
     Dates: start: 20130629, end: 20130630

REACTIONS (2)
  - Drug ineffective [Not Recovered/Not Resolved]
  - Lacrimation increased [Unknown]
